FAERS Safety Report 13946343 (Version 1)
Quarter: 2017Q3

REPORT INFORMATION
  Report Type: Report from Study
  Country: US (occurrence: US)
  Receive Date: 20170907
  Receipt Date: 20170907
  Transmission Date: 20171128
  Serious: Yes (Hospitalization)
  Sender: FDA-Public Use
  Company Number: US-ACTELION-A-US2017-158308

PATIENT
  Age: 83 Year
  Sex: Female

DRUGS (4)
  1. POTASSIUM [Concomitant]
     Active Substance: POTASSIUM
     Dosage: UNK MG, QD
  2. OPSUMIT [Suspect]
     Active Substance: MACITENTAN
     Indication: PULMONARY ARTERIAL HYPERTENSION
     Dosage: 10 MG, QD
     Route: 048
     Dates: start: 20170807
  3. OXYGEN. [Concomitant]
     Active Substance: OXYGEN
     Dosage: 5 L/MIN, CONT INFUS
     Dates: start: 2015
  4. SILDENAFIL. [Concomitant]
     Active Substance: SILDENAFIL
     Dosage: UNK MG, TID
     Route: 048

REACTIONS (4)
  - Therapy non-responder [Not Recovered/Not Resolved]
  - Pneumonia [Unknown]
  - Dyspnoea exertional [Not Recovered/Not Resolved]
  - Decreased activity [Not Recovered/Not Resolved]
